FAERS Safety Report 8236751-0 (Version None)
Quarter: 2012Q1

REPORT INFORMATION
  Report Type: 
  Country: None (occurrence: None)
  Receive Date: 20120323
  Receipt Date: 20120309
  Transmission Date: 20120608
  Serious: Yes (Other)
  Sender: FDA-Public Use
  Company Number: 2012FO001004

PATIENT
  Age: 76 Year
  Sex: Female
  Weight: 92.9874 kg

DRUGS (4)
  1. CENTRUM SILVER  /01292501/ [Concomitant]
  2. CLOBETASOL PROPIONATE [Suspect]
     Indication: LICHEN SCLEROSUS
     Dosage: 0.05 PCT;QD 0.05 PCT;PRN
     Dates: start: 20111201
  3. CLOBETASOL PROPIONATE [Suspect]
     Indication: LICHEN SCLEROSUS
     Dosage: 0.05 PCT;QD 0.05 PCT;PRN
     Dates: start: 20110101, end: 20111201
  4. OCUVITE /01053801/ [Concomitant]

REACTIONS (15)
  - MUSCULOSKELETAL CHEST PAIN [None]
  - BACK PAIN [None]
  - RENAL PAIN [None]
  - PSORIASIS [None]
  - OSTEOPENIA [None]
  - GASTROINTESTINAL PAIN [None]
  - CATARACT OPERATION [None]
  - PAIN IN EXTREMITY [None]
  - SUTURE RUPTURE [None]
  - STRESS [None]
  - HYPERTENSION [None]
  - ARTHRALGIA [None]
  - POST PROCEDURAL HAEMORRHAGE [None]
  - SKIN ATROPHY [None]
  - GAIT DISTURBANCE [None]
